FAERS Safety Report 7333947-7 (Version None)
Quarter: 2011Q1

REPORT INFORMATION
  Report Type: 
  Country: None (occurrence: None)
  Receive Date: 20110307
  Receipt Date: 20110224
  Transmission Date: 20110831
  Serious: Yes (Other)
  Sender: FDA-Public Use
  Company Number: US-BIOGENIDEC-2011BI005150

PATIENT
  Age: 41 Year
  Sex: Female

DRUGS (1)
  1. AVONEX [Suspect]
     Indication: MULTIPLE SCLEROSIS
     Route: 030
     Dates: start: 20101001

REACTIONS (6)
  - PARAESTHESIA [None]
  - HYPOAESTHESIA [None]
  - CONVULSION [None]
  - ASTHENIA [None]
  - FEELING COLD [None]
  - ABDOMINAL DISCOMFORT [None]
